FAERS Safety Report 21220412 (Version 1)
Quarter: 2022Q3

REPORT INFORMATION
  Report Type: Spontaneous
  Country: FR (occurrence: FR)
  Receive Date: 20220817
  Receipt Date: 20220817
  Transmission Date: 20221027
  Serious: Yes (Hospitalization)
  Sender: FDA-Public Use
  Company Number: None

PATIENT
  Age: 56 Year
  Sex: Female

DRUGS (5)
  1. CARBOPLATIN [Suspect]
     Active Substance: CARBOPLATIN
     Indication: Triple negative breast cancer
     Dosage: 4 MILLIGRAM (2 MG/ML/MIN *2/ 3 SEMAINES)
     Route: 042
     Dates: start: 20220722, end: 20220722
  2. GEMCITABINE [Suspect]
     Active Substance: GEMCITABINE
     Indication: Triple negative breast cancer
     Dosage: 2000 MILLIGRAM/SQ. METER
     Route: 042
     Dates: start: 20220722, end: 20220722
  3. AUGMENTIN [Suspect]
     Active Substance: AMOXICILLIN\CLAVULANATE POTASSIUM
     Indication: Lung disorder
     Dosage: 3 DOSAGE FORM, ONCE A DAY (1DF *3/ J)
     Route: 048
     Dates: start: 20220717, end: 20220722
  4. KEYTRUDA [Suspect]
     Active Substance: PEMBROLIZUMAB
     Indication: Triple negative breast cancer
     Dosage: 200 MILLIGRAM
     Route: 042
     Dates: start: 20220722, end: 20220722
  5. PAXLOVID [Suspect]
     Active Substance: NIRMATRELVIR\RITONAVIR
     Indication: Product used for unknown indication
     Dosage: 2 DOSAGE FORM, ONCE A DAY (1DF *2/J)
     Route: 048
     Dates: start: 20220728, end: 20220801

REACTIONS (1)
  - Rash maculo-papular [Not Recovered/Not Resolved]

NARRATIVE: CASE EVENT DATE: 20220730
